FAERS Safety Report 16015789 (Version 1)
Quarter: 2019Q1

REPORT INFORMATION
  Report Type: Spontaneous
  Country: US (occurrence: US)
  Receive Date: 20190228
  Receipt Date: 20190228
  Transmission Date: 20190418
  Serious: No
  Sender: FDA-Public Use
  Company Number: US-ASTRAZENECA-2019SE18395

PATIENT
  Age: 86 Year
  Sex: Male

DRUGS (14)
  1. JANUVIA [Concomitant]
     Active Substance: SITAGLIPTIN PHOSPHATE
  2. PROTONIX [Concomitant]
     Active Substance: PANTOPRAZOLE SODIUM
  3. SYNTHROID [Concomitant]
     Active Substance: LEVOTHYROXINE SODIUM
  4. LANOXIN [Concomitant]
     Active Substance: DIGOXIN
  5. CRESTOR [Suspect]
     Active Substance: ROSUVASTATIN CALCIUM
     Route: 048
  6. BABY ASPIRIN [Concomitant]
     Active Substance: ASPIRIN
  7. MULTIVITAMINS [Concomitant]
     Active Substance: VITAMINS
  8. ALDACTONE [Concomitant]
     Active Substance: SPIRONOLACTONE
  9. NITROGLYCERIN. [Concomitant]
     Active Substance: NITROGLYCERIN
  10. BYSTOLIC [Concomitant]
     Active Substance: NEBIVOLOL HYDROCHLORIDE
  11. PLAVIX [Concomitant]
     Active Substance: CLOPIDOGREL BISULFATE
  12. DEMADEX [Concomitant]
     Active Substance: TORSEMIDE
  13. ATORVASTATIN [Suspect]
     Active Substance: ATORVASTATIN
     Route: 065
  14. METRONIDAZOLE. [Concomitant]
     Active Substance: METRONIDAZOLE

REACTIONS (1)
  - Drug intolerance [Unknown]
